FAERS Safety Report 9230595 (Version 1)
Quarter: 2013Q2

REPORT INFORMATION
  Report Type: Spontaneous
  Country: FR (occurrence: FR)
  Receive Date: 20130415
  Receipt Date: 20130415
  Transmission Date: 20140414
  Serious: Yes (Hospitalization)
  Sender: FDA-Public Use
  Company Number: FR-SANOFI-AVENTIS-2013SA036776

PATIENT
  Age: 83 Year
  Sex: Male

DRUGS (8)
  1. RIFINAH [Suspect]
     Indication: TUBERCULOSIS
     Route: 065
     Dates: start: 20130206, end: 20130220
  2. RIFINAH [Suspect]
     Indication: TUBERCULOSIS
     Route: 065
     Dates: start: 20130226, end: 20130227
  3. AMIODARONE [Concomitant]
  4. LASILIX [Concomitant]
  5. STILNOX [Concomitant]
  6. PREVISCAN [Concomitant]
  7. HEMIGOXINE NATIVELLE [Concomitant]
  8. STABLON [Concomitant]

REACTIONS (1)
  - C-reactive protein increased [Recovering/Resolving]
